FAERS Safety Report 4569651-8 (Version None)
Quarter: 2005Q1

REPORT INFORMATION
  Report Type: 
  Country: None (occurrence: None)
  Receive Date: 20050201
  Receipt Date: 20050119
  Transmission Date: 20050727
  Serious: Yes (Hospitalization, Other)
  Sender: FDA-Public Use
  Company Number: 2003007682

PATIENT
  Age: 45 Year
  Sex: Female
  Weight: 40.6 kg

DRUGS (3)
  1. CARDENALIN (DOXAZOSIN) [Suspect]
     Indication: PROPHYLAXIS
     Dosage: UNKNOWN (UNKNOWN); ORAL
     Route: 048
     Dates: start: 20000223, end: 20020923
  2. HYDROCORTISONE [Concomitant]
  3. FAMOTIDINE [Concomitant]

REACTIONS (9)
  - ABDOMINAL PAIN UPPER [None]
  - BLOOD LACTATE DEHYDROGENASE INCREASED [None]
  - BLOOD PRESSURE INCREASED [None]
  - C-REACTIVE PROTEIN INCREASED [None]
  - PHAEOCHROMOCYTOMA [None]
  - RECURRENT CANCER [None]
  - TUMOUR HAEMORRHAGE [None]
  - VISUAL DISTURBANCE [None]
  - WHITE BLOOD CELL COUNT INCREASED [None]
